FAERS Safety Report 9459963 (Version 1)
Quarter: 2013Q3

REPORT INFORMATION
  Report Type: Spontaneous
  Country: US (occurrence: None)
  Receive Date: 20130813
  Receipt Date: 20130813
  Transmission Date: 20140515
  Serious: Yes (Hospitalization)
  Sender: FDA-Public Use
  Company Number: None

PATIENT
  Age: 65 Year
  Sex: Male
  Weight: 82.56 kg

DRUGS (6)
  1. LISINOPRIL [Suspect]
     Indication: HYPERTENSION
     Route: 048
     Dates: start: 19950101, end: 20130406
  2. CLOBETASOL [Concomitant]
  3. CERA VE [Concomitant]
  4. CETAPHIL [Concomitant]
  5. BENADRYL [Concomitant]
  6. ZERTEC [Concomitant]

REACTIONS (3)
  - Urticaria [None]
  - Haemorrhage [None]
  - Drug hypersensitivity [None]
